FAERS Safety Report 17842034 (Version 4)
Quarter: 2020Q3

REPORT INFORMATION
  Report Type: Report from Study
  Country: US (occurrence: US)
  Receive Date: 20200529
  Receipt Date: 20200819
  Transmission Date: 20201103
  Serious: Yes (Hospitalization)
  Sender: FDA-Public Use
  Company Number: US-ACTELION-A-US2020-203328

PATIENT
  Sex: Female

DRUGS (7)
  1. OPSUMIT [Suspect]
     Active Substance: MACITENTAN
     Indication: SLEEP APNOEA SYNDROME
     Dosage: 10 MG
     Route: 048
     Dates: start: 20200313
  2. METOPROLOL. [Concomitant]
     Active Substance: METOPROLOL
  3. METRONIDAZOLE. [Concomitant]
     Active Substance: METRONIDAZOLE
  4. DOCUSATE SODIUM. [Concomitant]
     Active Substance: DOCUSATE SODIUM
  5. TRIAMCINOLONE ACETONIDE. [Concomitant]
     Active Substance: TRIAMCINOLONE ACETONIDE
  6. METOLAZONE. [Concomitant]
     Active Substance: METOLAZONE
  7. TRAMADOL. [Concomitant]
     Active Substance: TRAMADOL

REACTIONS (13)
  - Constipation [Unknown]
  - Hypersensitivity [Recovered/Resolved]
  - Tremor [Unknown]
  - Hypotension [Unknown]
  - Product dose omission issue [Unknown]
  - Renal failure [Recovered/Resolved]
  - Condition aggravated [Recovered/Resolved]
  - Kidney infection [Recovered/Resolved]
  - Pulmonary arterial hypertension [Recovered/Resolved]
  - Memory impairment [Unknown]
  - Fluid overload [Recovered/Resolved]
  - Somnolence [Recovered/Resolved]
  - Fluid retention [Recovered/Resolved]
